FAERS Safety Report 6434719-8 (Version None)
Quarter: 2009Q4

REPORT INFORMATION
  Report Type: 
  Country: None (occurrence: None)
  Receive Date: 20091110
  Receipt Date: 20091103
  Transmission Date: 20100525
  Serious: Yes (Death)
  Sender: FDA-Public Use
  Company Number: GXKR2009JP12063

PATIENT
  Age: 74 Year
  Sex: Male

DRUGS (1)
  1. MEXILETINE (NGX) [Suspect]
     Indication: ARRHYTHMIA
     Dosage: 100 MG/DAY
     Route: 065

REACTIONS (16)
  - ABDOMINAL DISTENSION [None]
  - ABDOMINAL PAIN [None]
  - BACK PAIN [None]
  - CYTOMEGALOVIRUS ENTEROCOLITIS [None]
  - CYTOMEGALOVIRUS INFECTION [None]
  - DRUG RASH WITH EOSINOPHILIA AND SYSTEMIC SYMPTOMS [None]
  - GASTROINTESTINAL HAEMORRHAGE [None]
  - HUMAN HERPES VIRUS 6 SEROLOGY POSITIVE [None]
  - LIVER DISORDER [None]
  - LOSS OF CONSCIOUSNESS [None]
  - PYREXIA [None]
  - RASH ERYTHEMATOUS [None]
  - RASH PAPULAR [None]
  - RESPIRATORY FAILURE [None]
  - SHOCK HAEMORRHAGIC [None]
  - SKIN PLAQUE [None]
